FAERS Safety Report 16346151 (Version 1)
Quarter: 2019Q2

REPORT INFORMATION
  Report Type: Spontaneous
  Country: None (occurrence: US)
  Receive Date: 20190523
  Receipt Date: 20190523
  Transmission Date: 20190711
  Serious: Yes (Hospitalization)
  Sender: FDA-Public Use
  Company Number: US-CEDIPROF, INC.-2067342

PATIENT
  Age: 69 Year
  Sex: Male

DRUGS (4)
  1. PLAVIX [Suspect]
     Active Substance: CLOPIDOGREL BISULFATE
  2. ENTRESTO [Suspect]
     Active Substance: SACUBITRIL\VALSARTAN
  3. LEVO-T [Suspect]
     Active Substance: LEVOTHYROXINE SODIUM
     Indication: PRODUCT USED FOR UNKNOWN INDICATION
  4. COUMADIN [Suspect]
     Active Substance: WARFARIN SODIUM

REACTIONS (14)
  - Basal cell carcinoma [Unknown]
  - Haemoglobin decreased [Unknown]
  - Cholelithiasis [Unknown]
  - Cardiac disorder [Unknown]
  - Squamous cell carcinoma of skin [Unknown]
  - Dyspnoea [Unknown]
  - Hepatic calcification [Unknown]
  - Arteriosclerosis [Unknown]
  - Skin cancer [Unknown]
  - Small intestinal haemorrhage [Unknown]
  - Renal disorder [Unknown]
  - Internal haemorrhage [Unknown]
  - Dysuria [Unknown]
  - Nephrocalcinosis [Unknown]
